FAERS Safety Report 6713784-4 (Version None)
Quarter: 2010Q2

REPORT INFORMATION
  Report Type: 
  Country: None (occurrence: None)
  Receive Date: 20100506
  Receipt Date: 20100426
  Transmission Date: 20101027
  Serious: Yes (Other)
  Sender: FDA-Public Use
  Company Number: ES-JNJFOC-20100407870

PATIENT
  Age: 42 Year
  Sex: Male

DRUGS (8)
  1. REMICADE [Suspect]
     Indication: PSORIATIC ARTHROPATHY
     Dosage: RECEIVED INITIAL DOSES AT WEEKS 0, 2 AND 6
     Route: 042
  2. REMICADE [Suspect]
     Indication: PSORIASIS
     Dosage: RECEIVED INITIAL DOSES AT WEEKS 0, 2 AND 6
     Route: 042
  3. METHOTREXATE [Concomitant]
     Indication: PSORIATIC ARTHROPATHY
     Route: 048
  4. METHOTREXATE [Concomitant]
     Indication: PSORIASIS
     Route: 048
  5. GABAPENTIN [Concomitant]
     Indication: PSORIATIC ARTHROPATHY
  6. GABAPENTIN [Concomitant]
     Indication: PSORIASIS
  7. FOLIC ACID [Concomitant]
     Indication: PSORIATIC ARTHROPATHY
  8. FOLIC ACID [Concomitant]
     Indication: PSORIASIS

REACTIONS (1)
  - HERPES ZOSTER OPHTHALMIC [None]
